FAERS Safety Report 18307822 (Version 2)
Quarter: 2020Q3

REPORT INFORMATION
  Report Type: Spontaneous
  Country: DE (occurrence: DE)
  Receive Date: 20200924
  Receipt Date: 20200925
  Transmission Date: 20201103
  Serious: Yes (Other)
  Sender: FDA-Public Use
  Company Number: DE-009507513-2009DEU008721

PATIENT
  Age: 36 Year
  Sex: Female

DRUGS (5)
  1. MENOTROPINS [Suspect]
     Active Substance: MENOTROPINS
     Indication: ASSISTED REPRODUCTIVE TECHNOLOGY
     Dosage: 150 [IU] IN 1 DAY, 1?11 CYCLE DAY
     Route: 065
     Dates: start: 20200416
  2. PROGESTERONE. [Suspect]
     Active Substance: PROGESTERONE
     Indication: ASSISTED REPRODUCTIVE TECHNOLOGY
     Dosage: 600 MG IN 1 DAY
     Route: 067
  3. GONADORELIN ACETATE [Suspect]
     Active Substance: GONADORELIN ACETATE
     Indication: ASSISTED REPRODUCTIVE TECHNOLOGY
     Dosage: 1?11 CYCLE DAY, 0.1 MG IN 1 DAY (DAY OF CYCLE)
     Route: 065
     Dates: start: 20200416
  4. MENOTROPINS [Suspect]
     Active Substance: MENOTROPINS
     Indication: ASSISTED REPRODUCTIVE TECHNOLOGY
     Dosage: 1?10 CYCLE DAY, {1 DF} IN 1 DAY
     Route: 065
     Dates: start: 20200416
  5. GONADOTROPIN, CHORIONIC [Suspect]
     Active Substance: CHORIOGONADOTROPIN ALFA
     Indication: OVULATION INDUCTION
     Dosage: 5000 INTERNATIONAL UNIT [IU] (TOTAL))
     Route: 065
     Dates: start: 20200426, end: 20200426

REACTIONS (2)
  - Ovarian hyperstimulation syndrome [Recovered/Resolved]
  - Ascites [Recovered/Resolved]

NARRATIVE: CASE EVENT DATE: 20200512
